FAERS Safety Report 5010461-5 (Version None)
Quarter: 2006Q2

REPORT INFORMATION
  Report Type: 
  Country: None (occurrence: None)
  Receive Date: 20060523
  Receipt Date: 20060515
  Transmission Date: 20061013
  Serious: Yes (Disabling)
  Sender: FDA-Public Use
  Company Number: 2006-01166

PATIENT
  Sex: Male

DRUGS (2)
  1. VELCADE [Suspect]
     Dosage: 1.30 MG/M2
     Dates: start: 20060303, end: 20060331
  2. ALIMTA [Suspect]
     Dosage: 500.00 MG/M2
     Dates: start: 20060303, end: 20060331

REACTIONS (4)
  - ASTHENIA [None]
  - DISEASE PROGRESSION [None]
  - MENTAL STATUS CHANGES [None]
  - MOOD ALTERED [None]
